FAERS Safety Report 5050678-7 (Version None)
Quarter: 2006Q3

REPORT INFORMATION
  Report Type: 
  Country: None (occurrence: None)
  Receive Date: 20060710
  Receipt Date: 20060630
  Transmission Date: 20061208
  Serious: Yes (Hospitalization)
  Sender: FDA-Public Use
  Company Number: 2006-07-0003

PATIENT
  Age: 75 Year
  Sex: Male

DRUGS (1)
  1. FLUTAMIDE [Suspect]
     Dosage: ORAL
     Route: 048
     Dates: start: 20051101

REACTIONS (1)
  - RETINITIS [None]
